FAERS Safety Report 14355164 (Version 1)
Quarter: 2018Q1

REPORT INFORMATION
  Report Type: Spontaneous
  Country: US (occurrence: US)
  Receive Date: 20180105
  Receipt Date: 20180105
  Transmission Date: 20180509
  Serious: Yes (Life-Threatening, Other)
  Sender: FDA-Public Use
  Company Number: US-AUROBINDO-AUR-APL-2018-000306

PATIENT
  Age: 15 Month
  Sex: Female

DRUGS (3)
  1. LINEZOLID. [Suspect]
     Active Substance: LINEZOLID
     Indication: THYMUS ABSCESS
     Dosage: ()
     Route: 048
  2. VANCOMYCIN [Suspect]
     Active Substance: VANCOMYCIN
     Indication: THYMUS ABSCESS
     Dosage: PERIPHERALLY INSERTED CENTRAL CATHETER ()
     Route: 042
  3. CEFTRIAXONE. [Suspect]
     Active Substance: CEFTRIAXONE
     Indication: THYMUS ABSCESS
     Dosage: PERIPHERALLY INSERTED CENTRAL CATHETER ()
     Route: 042

REACTIONS (2)
  - Neutropenia [Recovered/Resolved]
  - Bone marrow failure [Recovered/Resolved]
